FAERS Safety Report 7342105-1 (Version None)
Quarter: 2011Q1

REPORT INFORMATION
  Report Type: 
  Country: None (occurrence: None)
  Receive Date: 20110309
  Receipt Date: 20110302
  Transmission Date: 20110831
  Serious: Yes (Hospitalization)
  Sender: FDA-Public Use
  Company Number: US-RB-023232-11

PATIENT
  Age: 38 Year
  Sex: Male

DRUGS (3)
  1. SUBOXONE [Suspect]
     Indication: DRUG DEPENDENCE
     Route: 060
     Dates: start: 20050101, end: 20101201
  2. XANAX [Concomitant]
     Indication: ANXIETY
     Dosage: DOSING DETAILS UNKNOWN
     Route: 065
  3. SUBOXONE [Suspect]
     Route: 060
     Dates: start: 20110228

REACTIONS (5)
  - DRUG WITHDRAWAL SYNDROME [None]
  - GALLBLADDER DISORDER [None]
  - PANCREATITIS [None]
  - ABDOMINAL PAIN [None]
  - PAIN [None]
